FAERS Safety Report 7044539-1 (Version None)
Quarter: 2010Q4

REPORT INFORMATION
  Report Type: 
  Country: None (occurrence: None)
  Receive Date: 20101014
  Receipt Date: 20101012
  Transmission Date: 20110411
  Serious: Yes (Hospitalization)
  Sender: FDA-Public Use
  Company Number: CA-JNJFOC-20100908942

PATIENT
  Sex: Female
  Weight: 111 kg

DRUGS (2)
  1. REMICADE [Suspect]
     Indication: CROHN'S DISEASE
     Route: 042
  2. REMICADE [Suspect]
     Route: 042

REACTIONS (4)
  - CONDITION AGGRAVATED [None]
  - FEAR [None]
  - GASTROINTESTINAL INFECTION [None]
  - RESPIRATORY TRACT INFECTION [None]
